FAERS Safety Report 5913487-X (Version None)
Quarter: 2008Q4

REPORT INFORMATION
  Report Type: 
  Country: None (occurrence: None)
  Receive Date: 20081009
  Receipt Date: 20080930
  Transmission Date: 20090506
  Serious: Yes (Other)
  Sender: FDA-Public Use
  Company Number: US-JNJFOC-20081000522

PATIENT
  Age: 31 Year
  Sex: Male
  Weight: 83.92 kg

DRUGS (4)
  1. TYLENOL COLD MULTI-SYMPTOM NIGHTTIME COOL BURST [Suspect]
     Route: 048
  2. TYLENOL COLD MULTI-SYMPTOM NIGHTTIME COOL BURST [Suspect]
     Indication: NASOPHARYNGITIS
     Route: 048
  3. WELLBUTRIN XL [Interacting]
     Indication: DEPRESSION
  4. WELLBUTRIN XL [Interacting]
     Indication: ANXIETY

REACTIONS (4)
  - DIZZINESS [None]
  - DRUG INTERACTION [None]
  - LOSS OF CONSCIOUSNESS [None]
  - VOMITING [None]
